FAERS Safety Report 8340544 (Version 2)
Quarter: 2015Q1

REPORT INFORMATION
  Report Type: Report from Study
  Country: US (occurrence: US)
  Receive Date: 20120117
  Receipt Date: 20150224
  Transmission Date: 20150721
  Serious: Yes (Death)
  Sender: FDA-Public Use
  Company Number: US-ROCHE-1028921

PATIENT
  Age: 50 Year
  Sex: Male

DRUGS (11)
  1. DECADRON [Concomitant]
     Active Substance: DEXAMETHASONE
     Dosage: SUBSEQUENTLY ON 4/MAR/2010 AND 29/APR/2010
     Route: 042
     Dates: start: 20100212
  2. AVASTIN [Suspect]
     Active Substance: BEVACIZUMAB
     Dosage: SUBSEQUENTLY ON, 14/SEP/2010, 14/OCT/2010, 01/NOV/2010, 15/NOV//2010
     Route: 042
     Dates: start: 20100811
  3. AVASTIN [Suspect]
     Active Substance: BEVACIZUMAB
     Indication: MALIGNANT MELANOMA
     Dosage: SUBSEQUENTLY ON 04/MAR/2010, 29/APR/2010, 26/MAY/2010
     Route: 042
     Dates: start: 20100212
  4. SOLU-MEDROL [Concomitant]
     Active Substance: METHYLPREDNISOLONE SODIUM SUCCINATE
     Route: 042
     Dates: start: 20100212
  5. SOLU-MEDROL [Concomitant]
     Active Substance: METHYLPREDNISOLONE SODIUM SUCCINATE
     Route: 065
     Dates: start: 20100304
  6. ALOXI [Concomitant]
     Active Substance: PALONOSETRON HYDROCHLORIDE
     Dosage: SUBSEQUENTLY ON 04/MAR/2010 AND 29/APR/2010
     Route: 042
     Dates: start: 20100212
  7. TAXOL [Concomitant]
     Active Substance: PACLITAXEL
     Dosage: SUBSEQUENTLY ON 4/MAR/2010 AND 29/APR/2010
     Route: 042
  8. NEULASTA [Concomitant]
     Active Substance: PEGFILGRASTIM
     Dosage: SUBSEQUENTLY ON 4/MAR/2010 AND 29/APR/2010
     Route: 058
     Dates: start: 20100212
  9. PEPCID [Concomitant]
     Active Substance: FAMOTIDINE
     Dosage: SUBSEQUENTLY ON 4/MAR/2010 AND 29/APR/2010
     Route: 042
     Dates: start: 20100212
  10. BENADRYL [Concomitant]
     Active Substance: DIPHENHYDRAMINE HYDROCHLORIDE
     Dosage: SUBSEQUENTLY ON 4/MAR/2010 AND 29/APR/2010
     Route: 042
     Dates: start: 20100212
  11. CARBOPLATIN. [Concomitant]
     Active Substance: CARBOPLATIN
     Dosage: SUBSEQUENTLY ON 4/MAR/2010 AND 29/APR/2010
     Route: 042
     Dates: start: 20100212

REACTIONS (5)
  - Nausea [Unknown]
  - Oedema [Unknown]
  - Death [Fatal]
  - Headache [Unknown]
  - Off label use [Unknown]

NARRATIVE: CASE EVENT DATE: 20101129
